FAERS Safety Report 13657639 (Version 1)
Quarter: 2017Q2

REPORT INFORMATION
  Report Type: Spontaneous
  Country: FR (occurrence: FR)
  Receive Date: 20170615
  Receipt Date: 20170615
  Transmission Date: 20170830
  Serious: Yes (Other)
  Sender: FDA-Public Use
  Company Number: FR-ARIAD PHARMACEUTICALS, INC-2017FR008390

PATIENT
  Age: 35 Year
  Sex: Male

DRUGS (3)
  1. METHOTREXATE. [Suspect]
     Active Substance: METHOTREXATE
     Indication: MYELOPROLIFERATIVE NEOPLASM
     Dosage: 3000 MG/M2, 3 COURSES
  2. ICLUSIG [Suspect]
     Active Substance: PONATINIB
     Indication: MYELOPROLIFERATIVE NEOPLASM
     Dosage: 45 MG, QD
     Route: 048
  3. CYTARABINE. [Suspect]
     Active Substance: CYTARABINE
     Indication: MYELOPROLIFERATIVE NEOPLASM
     Dosage: INTERMEDIATE DOSES

REACTIONS (4)
  - Stem cell transplant [Unknown]
  - Infection [Unknown]
  - Graft versus host disease in gastrointestinal tract [Unknown]
  - Off label use [Unknown]

NARRATIVE: CASE EVENT DATE: 201603
